FAERS Safety Report 4418548-2 (Version None)
Quarter: 2004Q3

REPORT INFORMATION
  Report Type: 
  Country: None (occurrence: None)
  Receive Date: 20040809
  Receipt Date: 20040602
  Transmission Date: 20050211
  Serious: No
  Sender: FDA-Public Use
  Company Number: US-GLAXOSMITHKLINE-A0513044A

PATIENT
  Age: 55 Year
  Sex: Female

DRUGS (2)
  1. PAXIL [Suspect]
     Indication: POST-TRAUMATIC STRESS DISORDER
     Dosage: 12.5MG PER DAY
     Route: 048
  2. XANAX [Concomitant]

REACTIONS (4)
  - ATAXIA [None]
  - BURNING SENSATION [None]
  - HEADACHE [None]
  - MUSCLE CRAMP [None]
